FAERS Safety Report 6370211-7 (Version None)
Quarter: 2009Q3

REPORT INFORMATION
  Report Type: 
  Country: None (occurrence: None)
  Receive Date: 20090923
  Receipt Date: 20090915
  Transmission Date: 20100115
  Serious: Yes (Hospitalization)
  Sender: FDA-Public Use
  Company Number: GR-ABBOTT-09P-066-0597397-00

PATIENT
  Age: 63 Year
  Sex: Female
  Weight: 57.3 kg

DRUGS (20)
  1. ZEMPLAR [Suspect]
     Indication: HYPERPARATHYROIDISM SECONDARY
     Route: 042
     Dates: start: 20070626
  2. CILROTON [Concomitant]
     Indication: VOMITING
     Route: 048
     Dates: start: 20090413
  3. BEROVENT [Concomitant]
     Indication: COR PULMONALE CHRONIC
     Route: 055
     Dates: start: 20090413
  4. PULMICORT-100 [Concomitant]
     Indication: COR PULMONALE CHRONIC
     Route: 055
     Dates: start: 20090413
  5. PULMICORT-100 [Concomitant]
     Indication: RESPIRATORY TRACT INFECTION
  6. THEO-DUR [Concomitant]
     Indication: COR PULMONALE CHRONIC
     Route: 048
     Dates: start: 20090413
  7. EUTHYROX [Concomitant]
     Indication: HYPOTHYROIDISM
     Route: 048
     Dates: start: 20090413
  8. KLARICID [Concomitant]
     Indication: RESPIRATORY TRACT INFECTION
     Route: 048
     Dates: start: 20090413, end: 20090424
  9. LASIX [Concomitant]
     Indication: DIURETIC THERAPY
     Route: 048
     Dates: start: 20090413
  10. ISCOVER [Concomitant]
     Indication: CORONARY ARTERY DISEASE
     Route: 048
     Dates: start: 20050101
  11. IMDUR [Concomitant]
     Indication: CORONARY ARTERY DISEASE
     Route: 048
     Dates: start: 20050101
  12. ZURCAZOL [Concomitant]
     Indication: PROPHYLAXIS AGAINST GASTROINTESTINAL ULCER
     Route: 048
     Dates: start: 20070101
  13. CALCIORAL [Concomitant]
     Indication: HYPERPHOSPHATAEMIA
     Route: 048
     Dates: start: 20090701
  14. MIMPARA [Concomitant]
     Indication: HYPERPARATHYROIDISM SECONDARY
     Route: 048
     Dates: start: 20081101
  15. VASTAREL [Concomitant]
     Indication: VERTIGO
     Route: 048
     Dates: start: 20090401
  16. NITRONG [Concomitant]
     Indication: CORONARY ARTERY DISEASE
     Dates: start: 20050101
  17. SUPERAMINE [Concomitant]
     Indication: PERIPHERAL VASCULAR DISORDER
     Dosage: 2 MPS, ONCE EVERY THREE WEEKS
     Route: 042
     Dates: start: 20040101
  18. RETACTRIT [Concomitant]
     Indication: ANAEMIA
     Route: 042
     Dates: start: 20090401
  19. INSPRA [Concomitant]
     Indication: DRUG USE FOR UNKNOWN INDICATION
     Route: 048
     Dates: start: 20090901
  20. RENAGEL [Concomitant]
     Indication: HYPERPHOSPHATAEMIA
     Route: 048

REACTIONS (3)
  - DYSPNOEA [None]
  - FLUID RETENTION [None]
  - PULMONARY OEDEMA [None]
